FAERS Safety Report 9551477 (Version 1)
Quarter: 2013Q3

REPORT INFORMATION
  Report Type: Spontaneous
  Country: US (occurrence: None)
  Receive Date: 20130724
  Receipt Date: 20130724
  Transmission Date: 20140515
  Serious: Yes (Other)
  Sender: FDA-Public Use
  Company Number: PHEH2012US010706

PATIENT
  Age: 82 Year
  Sex: Male
  Weight: 68.5 kg

DRUGS (9)
  1. GLEEVEC [Suspect]
     Indication: GASTROINTESTINAL STROMAL TUMOUR
     Route: 048
     Dates: start: 20100722, end: 20110314
  2. ASPIRIN (ACETYLSALICYLIC  ACID) [Concomitant]
  3. SIMVASTATIN (SIMVASTATIN) [Concomitant]
  4. OMEPRAZOLE (OMEPRAZOLE) [Concomitant]
  5. METOPROL (METOPROLOL) [Concomitant]
  6. DIGOXIN (DIGOXIN) [Concomitant]
  7. TERAZOSIN (TERAZOSIN) [Concomitant]
  8. PREDNISONE (PREDNISONE) [Concomitant]
  9. ASA (ACETYLSALICYLIC ACID) [Concomitant]

REACTIONS (15)
  - Neoplasm progression [None]
  - Heart rate irregular [None]
  - Atrial fibrillation [None]
  - Oedema peripheral [None]
  - Anxiety [None]
  - Palpitations [None]
  - Rash [None]
  - Insomnia [None]
  - Toxicity to various agents [None]
  - Vomiting [None]
  - Nausea [None]
  - Dyspnoea [None]
  - Tremor [None]
  - Wrong technique in drug usage process [None]
  - Malignant neoplasm progression [None]
